FAERS Safety Report 7888067-X (Version None)
Quarter: 2011Q4

REPORT INFORMATION
  Report Type: 
  Country: None (occurrence: None)
  Receive Date: 20111103
  Receipt Date: 20111025
  Transmission Date: 20120403
  Serious: Yes (Life-Threatening, Hospitalization)
  Sender: FDA-Public Use
  Company Number: JP-TEVA-304865USA

PATIENT
  Sex: Male

DRUGS (9)
  1. ZINC ACETATE 25 MG + 50 MG CAPSULES [Suspect]
     Dosage: 200 MILLIGRAM;
     Route: 048
     Dates: start: 20100618, end: 20101104
  2. MOSAPRIDE CITRATE [Concomitant]
     Route: 048
     Dates: start: 20100514, end: 20110513
  3. LIVACT                             /01504901/ [Concomitant]
     Route: 048
     Dates: start: 20100514, end: 20110513
  4. SOLIFENACIN SUCCINATE [Concomitant]
     Route: 048
     Dates: start: 20111003
  5. MADOPAR                            /00349201/ [Concomitant]
     Route: 048
     Dates: start: 20100514, end: 20110513
  6. TAMSULOSIN HYDROCHLORIDE [Concomitant]
     Route: 048
     Dates: start: 20100514
  7. TOLTERODINE TARTRATE [Concomitant]
     Route: 048
     Dates: start: 20100514, end: 20110513
  8. ZINC ACETATE 25 MG + 50 MG CAPSULES [Suspect]
     Dosage: 200 MILLIGRAM;
     Route: 048
     Dates: start: 20101112
  9. ZINC ACETATE 25 MG + 50 MG CAPSULES [Suspect]
     Indication: HEPATO-LENTICULAR DEGENERATION
     Dosage: 150 MILLIGRAM;
     Route: 048
     Dates: start: 20100514, end: 20100617

REACTIONS (1)
  - GASTROINTESTINAL HAEMORRHAGE [None]
